FAERS Safety Report 5235816-5 (Version None)
Quarter: 2007Q1

REPORT INFORMATION
  Report Type: 
  Country: None (occurrence: None)
  Receive Date: 20070212
  Receipt Date: 20070206
  Transmission Date: 20070707
  Serious: Yes (Death)
  Sender: FDA-Public Use
  Company Number: 2007AP00740

PATIENT
  Age: 75 Year
  Sex: Male

DRUGS (8)
  1. SEROQUEL [Suspect]
     Indication: SENILE DEMENTIA
     Route: 048
     Dates: start: 20070104
  2. SEROQUEL [Suspect]
     Indication: CONDUCT DISORDER
     Route: 048
     Dates: start: 20070104
  3. SEROQUEL [Suspect]
     Route: 048
     Dates: start: 20070105
  4. SEROQUEL [Suspect]
     Route: 048
     Dates: start: 20070105
  5. GLYBURIDE [Concomitant]
     Indication: DIABETES MELLITUS
  6. CEFRADINE [Concomitant]
     Indication: WHITE BLOOD CELL COUNT INCREASED
     Dosage: STARTED AT TIME OF ADMISSION
  7. ALPRAZOLAM [Concomitant]
     Dosage: STARTED AT TIME OF ADMISSION
  8. ALPRAZOLAM [Concomitant]
     Dosage: STARTED AT TIME OF ADMISSION

REACTIONS (1)
  - ACUTE MYOCARDIAL INFARCTION [None]
